FAERS Safety Report 9157747 (Version 1)
Quarter: 2013Q1

REPORT INFORMATION
  Report Type: Spontaneous
  Country: US (occurrence: None)
  Receive Date: 20130311
  Receipt Date: 20130311
  Transmission Date: 20140127
  Serious: Yes (Other)
  Sender: FDA-Public Use
  Company Number: None

PATIENT
  Age: 44 Year
  Sex: Male
  Weight: 88.45 kg

DRUGS (6)
  1. DILAUDID [Suspect]
     Indication: HEADACHE
     Route: 042
     Dates: start: 20130308, end: 20130308
  2. DILAUDID [Suspect]
     Indication: MALAISE
     Route: 042
     Dates: start: 20130308, end: 20130308
  3. DILAUDID [Suspect]
     Indication: PRODUCT USED FOR UNKNOWN INDICATION
     Route: 042
     Dates: start: 20130308, end: 20130308
  4. ZOFRAN [Suspect]
     Indication: HEADACHE
     Route: 042
     Dates: start: 20130308, end: 20130308
  5. ZOFRAN [Suspect]
     Indication: MALAISE
     Route: 042
     Dates: start: 20130308, end: 20130308
  6. ZOFRAN [Suspect]
     Indication: PRODUCT USED FOR UNKNOWN INDICATION
     Route: 042
     Dates: start: 20130308, end: 20130308

REACTIONS (4)
  - Chest discomfort [None]
  - Head discomfort [None]
  - Altered state of consciousness [None]
  - Immobile [None]
